FAERS Safety Report 6977661-6 (Version None)
Quarter: 2010Q3

REPORT INFORMATION
  Report Type: 
  Country: None (occurrence: None)
  Receive Date: 20100913
  Receipt Date: 20100907
  Transmission Date: 20110219
  Serious: No
  Sender: FDA-Public Use
  Company Number: US-BIOGENIDEC-2010BI011699

PATIENT
  Age: 43 Year
  Sex: Female

DRUGS (3)
  1. TYSABRI [Suspect]
     Indication: MULTIPLE SCLEROSIS
     Route: 042
     Dates: start: 20091008
  2. BACLOFEN [Concomitant]
     Indication: HYPOAESTHESIA
     Dates: start: 20091224, end: 20100101
  3. BACLOFEN [Concomitant]
     Indication: PARAESTHESIA
     Dates: start: 20091224, end: 20100101

REACTIONS (2)
  - ASTHENIA [None]
  - FATIGUE [None]
